FAERS Safety Report 18280663 (Version 1)
Quarter: 2020Q3

REPORT INFORMATION
  Report Type: Spontaneous
  Country: DE (occurrence: DE)
  Receive Date: 20200918
  Receipt Date: 20200918
  Transmission Date: 20201103
  Serious: Yes (Hospitalization)
  Sender: FDA-Public Use
  Company Number: DE-PFIZER INC-2020359931

PATIENT
  Age: 37 Year
  Sex: Female

DRUGS (2)
  1. PANTOPRAZOLE [Suspect]
     Active Substance: PANTOPRAZOLE
     Dosage: 40 MILLIGRAM, QD
     Route: 065
  2. SALBUTAMOL [Concomitant]
     Active Substance: ALBUTEROL
     Dosage: 0.1 MILLIGRAM, QD

REACTIONS (5)
  - Vomiting [Unknown]
  - Haematemesis [Unknown]
  - Liver function test abnormal [Unknown]
  - Weight decreased [Unknown]
  - Paraesthesia [Unknown]
